FAERS Safety Report 4549058-X (Version None)
Quarter: 2004Q4

REPORT INFORMATION
  Report Type: 
  Country: None (occurrence: None)
  Receive Date: 20041227
  Receipt Date: 20041119
  Transmission Date: 20050328
  Serious: No
  Sender: FDA-Public Use
  Company Number: 04P-163-0265581-00

PATIENT
  Age: 72 Year
  Sex: Female
  Weight: 53.0709 kg

DRUGS (13)
  1. HUMIRA [Suspect]
     Indication: RHEUMATOID ARTHRITIS
     Dosage: 40 MG, 1 IN 2 WK, SUBCUTANEOUS
     Route: 058
     Dates: start: 20040610
  2. EPOGEN [Concomitant]
  3. ACETYLSALICYLIC ACID SRT [Concomitant]
  4. INSULIN [Concomitant]
  5. NPH INSULIN [Concomitant]
  6. GLIPIZIDE [Concomitant]
  7. OXYCOCET [Concomitant]
  8. PREDNISONE [Concomitant]
  9. ALPRAZOLAM [Concomitant]
  10. DURAGESIC [Concomitant]
  11. GABAPENTIN [Concomitant]
  12. ANAPRIL [Concomitant]
  13. HYDROCHLOROTHIAZIDE [Concomitant]

REACTIONS (4)
  - CONTUSION [None]
  - INJECTION SITE RASH [None]
  - NAUSEA [None]
  - PLATELET COUNT DECREASED [None]
